FAERS Safety Report 25107171 (Version 1)
Quarter: 2025Q1

REPORT INFORMATION
  Report Type: Spontaneous
  Country: US (occurrence: US)
  Receive Date: 20250321
  Receipt Date: 20250321
  Transmission Date: 20250409
  Serious: No
  Sender: INCYTE
  Company Number: US-EVENT-002028

PATIENT
  Age: 17 Year
  Weight: 63.5 kg

DRUGS (1)
  1. OPZELURA [Suspect]
     Active Substance: RUXOLITINIB PHOSPHATE
     Indication: Product used for unknown indication
     Dosage: 1.5 PERCENT, BID (APPLY A THIN LAYER TO AFFECTED AREA(S) TWICE DAILY AS DIRECTED)

REACTIONS (2)
  - COVID-19 [Unknown]
  - Influenza [Unknown]
